FAERS Safety Report 7048325-8 (Version None)
Quarter: 2010Q4

REPORT INFORMATION
  Report Type: 
  Country: None (occurrence: None)
  Receive Date: 20101015
  Receipt Date: 20101006
  Transmission Date: 20110411
  Serious: Yes (Hospitalization)
  Sender: FDA-Public Use
  Company Number: US-US-EMD SERONO, INC.-7011333

PATIENT
  Sex: Female
  Weight: 82 kg

DRUGS (5)
  1. REBIF [Suspect]
     Indication: MULTIPLE SCLEROSIS
     Route: 058
     Dates: start: 20100708, end: 20100101
  2. REBIF [Suspect]
     Route: 058
     Dates: start: 20100101, end: 20100809
  3. REBIF [Suspect]
     Route: 058
     Dates: start: 20100809
  4. BENICAR [Concomitant]
     Indication: HYPERTENSION
     Dates: end: 20100715
  5. METFORMIN [Concomitant]
     Indication: GLUCOSE TOLERANCE IMPAIRED

REACTIONS (13)
  - ANKLE FRACTURE [None]
  - APHAGIA [None]
  - ARTERIOSCLEROSIS CORONARY ARTERY [None]
  - CONTUSION [None]
  - DEHYDRATION [None]
  - FALL [None]
  - HEAD INJURY [None]
  - HYPERTENSION [None]
  - HYPOAESTHESIA [None]
  - INFLUENZA LIKE ILLNESS [None]
  - INJECTION SITE REACTION [None]
  - JOINT SPRAIN [None]
  - TRANSFUSION [None]
